FAERS Safety Report 19703428 (Version 1)
Quarter: 2021Q3

REPORT INFORMATION
  Report Type: Spontaneous
  Country: US (occurrence: US)
  Receive Date: 20210816
  Receipt Date: 20210816
  Transmission Date: 20211014
  Serious: Yes (Death)
  Sender: FDA-Public Use
  Company Number: US-JNJFOC-20210824902

PATIENT
  Age: 76 Year
  Sex: Male

DRUGS (1)
  1. BALVERSA [Suspect]
     Active Substance: ERDAFITINIB
     Indication: PRODUCT USED FOR UNKNOWN INDICATION
     Dosage: THE LAST KNOWN DATE WHEN DRUG WAS ADMINISTERED WAS 23?FEB?2021
     Route: 048

REACTIONS (1)
  - Death [Fatal]
